FAERS Safety Report 24307610 (Version 1)
Quarter: 2024Q3

REPORT INFORMATION
  Report Type: Spontaneous
  Country: US (occurrence: US)
  Receive Date: 20240911
  Receipt Date: 20240911
  Transmission Date: 20241017
  Serious: No
  Sender: BIOGEN
  Company Number: US-BIOGEN-2024BI01281729

PATIENT
  Sex: Female

DRUGS (13)
  1. VUMERITY [Suspect]
     Active Substance: DIROXIMEL FUMARATE
     Indication: Multiple sclerosis
     Route: 050
  2. METOPROLOL SUCCINATE [Concomitant]
     Active Substance: METOPROLOL SUCCINATE
     Route: 050
  3. FUROSEMIDE [Concomitant]
     Active Substance: FUROSEMIDE
     Route: 050
  4. TYLENOL [Concomitant]
     Active Substance: ACETAMINOPHEN
     Route: 050
  5. PROBIOTICS NOS [Concomitant]
     Active Substance: PROBIOTICS NOS
     Route: 050
  6. ZYRTEC [Concomitant]
     Active Substance: CETIRIZINE HYDROCHLORIDE
     Route: 050
  7. VITAMIN D2 [Concomitant]
     Active Substance: ERGOCALCIFEROL
     Route: 050
  8. DICYCLOMINE HYDROCHLORIDE [Concomitant]
     Active Substance: DICYCLOMINE HYDROCHLORIDE
     Route: 050
  9. DICYCLOMINE [Concomitant]
     Active Substance: DICYCLOMINE HYDROCHLORIDE
     Route: 050
  10. PANTOPRAZOLE SODIUM [Concomitant]
     Active Substance: PANTOPRAZOLE SODIUM
     Route: 050
  11. PROMETHAZINE HYDROCHLORIDE [Concomitant]
     Active Substance: PROMETHAZINE HYDROCHLORIDE
     Route: 050
  12. GABAPENTIN [Concomitant]
     Active Substance: GABAPENTIN
     Route: 050
  13. ALPRAZOLAM [Concomitant]
     Active Substance: ALPRAZOLAM
     Route: 050

REACTIONS (4)
  - Product dose omission in error [Unknown]
  - Breast pain [Unknown]
  - Lymphadenopathy [Unknown]
  - Swollen tongue [Unknown]
